FAERS Safety Report 8521242 (Version 7)
Quarter: 2013Q2

REPORT INFORMATION
  Report Type: Report from Study
  Country: US (occurrence: BR)
  Receive Date: 20120419
  Receipt Date: 20130422
  Transmission Date: 20140414
  Serious: Yes (Hospitalization, Other)
  Sender: FDA-Public Use
  Company Number: PHHO2010BR10678

PATIENT
  Age: 70 Year
  Sex: Male

DRUGS (3)
  1. MYCOPHENOLATE [Suspect]
     Indication: RENAL TRANSPLANT
     Dosage: 1080 MG, DAILY
     Route: 048
     Dates: start: 20080924
  2. PREDNISONE [Suspect]
     Dosage: 5 MG, QD
     Dates: start: 20080923
  3. BELATACEPT [Suspect]
     Indication: RENAL TRANSPLANT
     Dosage: 520 MG, UNK
     Route: 042
     Dates: start: 20080117

REACTIONS (3)
  - Basal cell carcinoma [Recovered/Resolved]
  - Squamous cell carcinoma of skin [Recovered/Resolved]
  - Skin lesion [Recovered/Resolved]
